FAERS Safety Report 9686576 (Version 5)
Quarter: 2014Q1

REPORT INFORMATION
  Report Type: Spontaneous
  Country: JP (occurrence: JP)
  Receive Date: 20131113
  Receipt Date: 20140129
  Transmission Date: 20141002
  Serious: Yes (Other)
  Sender: FDA-Public Use
  Company Number: JP-PFIZER INC-2013319830

PATIENT
  Age: 83 Year
  Sex: Female

DRUGS (3)
  1. CELECOX [Suspect]
     Indication: OSTEOARTHRITIS
     Dosage: 100 MG, 2X/DAY
     Route: 048
     Dates: start: 20131011, end: 20131025
  2. CELECOX [Suspect]
     Indication: PAIN
  3. LYRICA [Concomitant]
     Indication: OSTEOARTHRITIS
     Dosage: UNK
     Dates: end: 20131010

REACTIONS (1)
  - Eczema [Recovered/Resolved]
